FAERS Safety Report 6741950-0 (Version None)
Quarter: 2010Q2

REPORT INFORMATION
  Report Type: 
  Country: None (occurrence: None)
  Receive Date: 20100526
  Receipt Date: 20100525
  Transmission Date: 20101027
  Serious: Yes (Hospitalization)
  Sender: FDA-Public Use
  Company Number: D0067722A

PATIENT
  Sex: Male
  Weight: 120 kg

DRUGS (2)
  1. LAMOTRIGINE [Suspect]
     Indication: EPILEPSY
     Dosage: 100MG IN THE MORNING
     Route: 048
  2. CARBAMAZEPINE [Suspect]
     Indication: EPILEPSY
     Dosage: 900MG PER DAY
     Route: 048
     Dates: end: 20100315

REACTIONS (10)
  - DYSLIPIDAEMIA [None]
  - ENURESIS [None]
  - EPILEPSY [None]
  - FATIGUE [None]
  - FLATULENCE [None]
  - HYPONATRAEMIA [None]
  - MOUTH INJURY [None]
  - THIRST [None]
  - TYPE 2 DIABETES MELLITUS [None]
  - WEIGHT DECREASED [None]
